FAERS Safety Report 6568212-9 (Version None)
Quarter: 2010Q1

REPORT INFORMATION
  Report Type: 
  Country: None (occurrence: None)
  Receive Date: 20100127
  Receipt Date: 20100112
  Transmission Date: 20100710
  Serious: Yes (Death)
  Sender: FDA-Public Use
  Company Number: KV201000014

PATIENT
  Age: 48 Year
  Sex: Female
  Weight: 83.9 kg

DRUGS (13)
  1. MORPHINE SULFATE [Suspect]
     Indication: FIBROMYALGIA
     Dosage: 60 MG, BID, ORAL; 60 MG, TID, ORAL
     Route: 048
     Dates: start: 20080310, end: 20080402
  2. MORPHINE SULFATE [Suspect]
     Indication: FIBROMYALGIA
     Dosage: 60 MG, BID, ORAL; 60 MG, TID, ORAL
     Route: 048
     Dates: start: 20080402, end: 20080522
  3. PERCOCET [Concomitant]
  4. TOPROL-XL [Concomitant]
  5. LYRICA [Concomitant]
  6. SYNTHROID [Concomitant]
  7. AMBIEN [Concomitant]
  8. PROZAC [Concomitant]
  9. DEPAKOTE [Concomitant]
  10. MELOXICAM [Concomitant]
  11. MULTIVITAMIN /00831701/ (VITAMINS NOS) [Concomitant]
  12. LASIX [Concomitant]
  13. ROBITUSSIN /00048001/ (GUAIFENESIN) [Concomitant]

REACTIONS (12)
  - ACCIDENTAL DEATH [None]
  - COMMUNICATION DISORDER [None]
  - DIPLOPIA [None]
  - DRUG TOXICITY [None]
  - EXOSTOSIS [None]
  - FATIGUE [None]
  - OEDEMA PERIPHERAL [None]
  - PLANTAR FASCIITIS [None]
  - SOMNOLENCE [None]
  - TENDON INJURY [None]
  - UNRESPONSIVE TO STIMULI [None]
  - WRONG TECHNIQUE IN DRUG USAGE PROCESS [None]
